FAERS Safety Report 8465594-8 (Version None)
Quarter: 2012Q2

REPORT INFORMATION
  Report Type: 
  Country: None (occurrence: None)
  Receive Date: 20120626
  Receipt Date: 20120620
  Transmission Date: 20120825
  Serious: Yes (Hospitalization)
  Sender: FDA-Public Use
  Company Number: US-BAYER-2012-062541

PATIENT
  Age: 35 Year
  Sex: Female
  Weight: 104 kg

DRUGS (7)
  1. AMOXICILLIN [Concomitant]
     Dosage: 875 MG, UNK
     Route: 048
  2. AMBI 60 PSE-400 GFN [Concomitant]
     Dosage: UNK
     Route: 048
  3. YASMIN [Suspect]
     Dosage: UNK
  4. VALACYCLOVIR HYDROCHLORIDE [Concomitant]
     Dosage: 500 MG, UNK
     Route: 048
  5. DROSPIRENONE AND ETHINYL ESTRADIOL [Suspect]
     Dosage: UNK
  6. YAZ [Suspect]
     Dosage: UNK
  7. TRAZODONE HCL [Concomitant]
     Dosage: 50MG [ONE AT BEDTIME]
     Route: 048

REACTIONS (2)
  - DEEP VEIN THROMBOSIS [None]
  - PULMONARY EMBOLISM [None]
